FAERS Safety Report 17599727 (Version 4)
Quarter: 2020Q3

REPORT INFORMATION
  Report Type: Report from Study
  Country: None (occurrence: US)
  Receive Date: 20200330
  Receipt Date: 20200930
  Transmission Date: 20201102
  Serious: Yes (Other)
  Sender: FDA-Public Use
  Company Number: US-ABBVIE-20K-163-3341519-00

PATIENT
  Age: 49 Year
  Sex: Female

DRUGS (1)
  1. RINVOQ [Suspect]
     Active Substance: UPADACITINIB
     Indication: RHEUMATOID ARTHRITIS
     Route: 048
     Dates: end: 202003

REACTIONS (5)
  - Arthralgia [Unknown]
  - Nephrolithiasis [Not Recovered/Not Resolved]
  - Lumbar spinal stenosis [Unknown]
  - Intervertebral disc protrusion [Recovering/Resolving]
  - Joint stiffness [Unknown]

NARRATIVE: CASE EVENT DATE: 202003
